FAERS Safety Report 13783253 (Version 3)
Quarter: 2017Q3

REPORT INFORMATION
  Report Type: Spontaneous
  Country: US (occurrence: US)
  Receive Date: 20170724
  Receipt Date: 20170726
  Transmission Date: 20171127
  Serious: No
  Sender: FDA-Public Use
  Company Number: US-ASTRAZENECA-2017SE66863

PATIENT
  Age: 748 Month
  Sex: Female

DRUGS (12)
  1. FEMARA [Concomitant]
     Active Substance: LETROZOLE
     Route: 048
  2. FERROUS SULFATE. [Concomitant]
     Active Substance: FERROUS SULFATE
  3. FASLODEX [Suspect]
     Active Substance: FULVESTRANT
     Route: 030
     Dates: start: 20121203
  4. IBRANCE [Suspect]
     Active Substance: PALBOCICLIB
     Indication: BREAST CANCER METASTATIC
     Dosage: TAKE ONE TABLET DAILY FOR THREE WEEKS AND THEN ONE WEEK OFF
     Route: 048
     Dates: start: 201702
  5. ZOMETA [Concomitant]
     Active Substance: ZOLEDRONIC ACID
     Dosage: (4MG/5ML) 5 ML EVENRY THREE MONTH
     Route: 042
     Dates: start: 20121203
  6. CALCIUM [Concomitant]
     Active Substance: CALCIUM
     Dosage: INTERMITTANTLY
  7. FLUOCINONIDE. [Concomitant]
     Active Substance: FLUOCINONIDE
     Dosage: USE ON LEGS WITH SARAN OCCLUSSION FOR ONE-TWO HOURS DAILY
  8. ASCORBIC ACID. [Concomitant]
     Active Substance: ASCORBIC ACID
     Route: 048
  9. ANASTROZOLE. [Suspect]
     Active Substance: ANASTROZOLE
     Route: 048
     Dates: start: 20121203
  10. CHOLECALCIFEROL [Concomitant]
     Active Substance: CHOLECALCIFEROL
     Route: 048
  11. ONDANSETRON [Concomitant]
     Active Substance: ONDANSETRON
     Dosage: TAKE ONE TABLET EVENRY EIGHT HOURS AS NEEDED
     Route: 048
  12. BETAMETHASONE VALERATE. [Concomitant]
     Active Substance: BETAMETHASONE VALERATE
     Dosage: APPLY ON AFFECTED AREA TWO TIMES A DAY AS NEEDED

REACTIONS (4)
  - Weight increased [Not Recovered/Not Resolved]
  - Nausea [Recovered/Resolved]
  - Leukopenia [Not Recovered/Not Resolved]
  - Fatigue [Recovered/Resolved]

NARRATIVE: CASE EVENT DATE: 201703
